FAERS Safety Report 6987915-5 (Version None)
Quarter: 2010Q3

REPORT INFORMATION
  Report Type: 
  Country: None (occurrence: None)
  Receive Date: 20100916
  Receipt Date: 20100628
  Transmission Date: 20110219
  Serious: No
  Sender: FDA-Public Use
  Company Number: US-ABBOTT-10P-163-0654109-00

PATIENT
  Sex: Female
  Weight: 77.18 kg

DRUGS (1)
  1. TRILIPIX [Suspect]
     Indication: LOW DENSITY LIPOPROTEIN INCREASED
     Dosage: DAILY
     Route: 048
     Dates: start: 20100623

REACTIONS (2)
  - FEELING HOT [None]
  - NAUSEA [None]
